FAERS Safety Report 6164828-2 (Version None)
Quarter: 2009Q2

REPORT INFORMATION
  Report Type: 
  Country: None (occurrence: None)
  Receive Date: 20090423
  Receipt Date: 20090416
  Transmission Date: 20091009
  Serious: Yes (Hospitalization, Other)
  Sender: FDA-Public Use
  Company Number: PHHY2009JP14588

PATIENT
  Age: 76 Year
  Sex: Female

DRUGS (4)
  1. ZOMETA [Suspect]
     Indication: METASTASES TO BONE
     Dosage: 4 MG (INTERVAL NOT PROVIDED)
     Route: 042
     Dates: start: 20070601, end: 20080601
  2. ZOMETA [Suspect]
     Indication: MULTIPLE MYELOMA
  3. NORVASC [Concomitant]
     Dosage: UNK
     Route: 048
     Dates: start: 20070601, end: 20080601
  4. GASTER [Concomitant]
     Dosage: UNK
     Route: 048
     Dates: start: 20070601, end: 20080601

REACTIONS (2)
  - OSTEONECROSIS [None]
  - SEQUESTRECTOMY [None]
